FAERS Safety Report 9484822 (Version 1)
Quarter: 2013Q3

REPORT INFORMATION
  Report Type: Spontaneous
  Country: FR (occurrence: FR)
  Receive Date: 20130828
  Receipt Date: 20130828
  Transmission Date: 20140515
  Serious: Yes (Hospitalization)
  Sender: FDA-Public Use
  Company Number: FR-GLAXOSMITHKLINE-B0916716A

PATIENT
  Age: 63 Year
  Sex: Male

DRUGS (19)
  1. CLAVENTIN [Suspect]
     Indication: STAPHYLOCOCCAL INFECTION
     Route: 042
     Dates: start: 20130725, end: 20130804
  2. VANCOMYCINE [Suspect]
     Indication: PSEUDOMONAS INFECTION
     Route: 042
     Dates: start: 20130725, end: 20130801
  3. FLUINDIONE [Suspect]
     Indication: ATRIAL FLUTTER
     Route: 048
     Dates: start: 20130726, end: 20130806
  4. CORDARONE [Concomitant]
     Indication: ATRIAL FLUTTER
     Dosage: 2AMP SINGLE DOSE
     Dates: start: 20130725, end: 20130725
  5. BISOPROLOL [Concomitant]
     Indication: ATRIAL FLUTTER
     Dates: start: 20130726
  6. CARBAMAZEPINE [Concomitant]
     Dosage: 200MG TWICE PER DAY
     Route: 048
     Dates: start: 201211
  7. LASILIX [Concomitant]
     Dosage: 1G PER DAY
  8. ATORVASTATINE [Concomitant]
     Dosage: 40MG PER DAY
  9. INIPOMP [Concomitant]
     Dosage: 20MG PER DAY
  10. LYRICA [Concomitant]
     Dosage: 50MG PER DAY
  11. TOPALGIC (FRANCE) [Concomitant]
  12. CALCIUM ACETATE [Concomitant]
  13. LEVOTHYROX [Concomitant]
  14. RIVOTRIL [Concomitant]
  15. ANDROTARDYL [Concomitant]
  16. BICARBONATE [Concomitant]
  17. INSULIN [Concomitant]
  18. PARACETAMOL [Concomitant]
  19. GENTAMYCIN [Concomitant]
     Dates: end: 20130730

REACTIONS (9)
  - Toxic skin eruption [Recovering/Resolving]
  - Rash maculo-papular [Recovering/Resolving]
  - Rash generalised [Recovering/Resolving]
  - Pruritus [Recovering/Resolving]
  - Aspartate aminotransferase increased [Recovering/Resolving]
  - Alanine aminotransferase increased [Recovering/Resolving]
  - Blood alkaline phosphatase increased [Recovering/Resolving]
  - Gamma-glutamyltransferase increased [Not Recovered/Not Resolved]
  - Eosinophilia [Recovered/Resolved]
